FAERS Safety Report 18059380 (Version 1)
Quarter: 2020Q3

REPORT INFORMATION
  Report Type: Spontaneous
  Country: US (occurrence: US)
  Receive Date: 20200723
  Receipt Date: 20200723
  Transmission Date: 20201103
  Serious: Yes (Hospitalization, Other)
  Sender: FDA-Public Use
  Company Number: None

PATIENT
  Age: 46 Year
  Sex: Male
  Weight: 121.5 kg

DRUGS (25)
  1. CELEBREX [Concomitant]
     Active Substance: CELECOXIB
  2. POTASSIUM [Concomitant]
     Active Substance: POTASSIUM
  3. CALCIPITRONE CREAM [Concomitant]
  4. TIZANIDINE. [Concomitant]
     Active Substance: TIZANIDINE
  5. LASIX [Concomitant]
     Active Substance: FUROSEMIDE
  6. CRESTOR [Concomitant]
     Active Substance: ROSUVASTATIN CALCIUM
  7. ALLERGY IMMUNO THERAPY [Concomitant]
  8. C?PAP MACHINE [Concomitant]
     Active Substance: DEVICE
  9. VITAMIN C [Concomitant]
     Active Substance: ASCORBIC ACID
  10. ORENCIA [Concomitant]
     Active Substance: ABATACEPT
  11. KETAKONOZOLE SHAMPOO [Concomitant]
  12. BREO ELLIPTA [Concomitant]
     Active Substance: FLUTICASONE FUROATE\VILANTEROL TRIFENATATE
  13. GABAPENTIN. [Concomitant]
     Active Substance: GABAPENTIN
  14. INCRUSE ELLIPTA [Concomitant]
     Active Substance: UMECLIDINIUM BROMIDE
  15. ZEGERID [Concomitant]
     Active Substance: OMEPRAZOLE\SODIUM BICARBONATE
  16. SINGULAIR [Concomitant]
     Active Substance: MONTELUKAST SODIUM
  17. TADALAFIL. [Concomitant]
     Active Substance: TADALAFIL
  18. LISINOPRIL. [Concomitant]
     Active Substance: LISINOPRIL
  19. CLOBETASOL PROPIONATE SCALP SOLUTION [Concomitant]
  20. CHLORHEXIDINE GLUCONATE. [Suspect]
     Active Substance: CHLORHEXIDINE GLUCONATE
     Indication: INFECTION PROPHYLAXIS
     Route: 061
     Dates: start: 20170919, end: 20170920
  21. VITAMIN D [Concomitant]
     Active Substance: VITAMIN D NOS
  22. PREDNISONE. [Concomitant]
     Active Substance: PREDNISONE
  23. ZYRTEC [Concomitant]
     Active Substance: CETIRIZINE HYDROCHLORIDE
  24. CLOBETASOL PROPIONATE CREAM [Concomitant]
     Active Substance: CLOBETASOL PROPIONATE
  25. TRAMADOL. [Concomitant]
     Active Substance: TRAMADOL

REACTIONS (2)
  - Accidental exposure to product [None]
  - Anaphylactic reaction [None]

NARRATIVE: CASE EVENT DATE: 20170919
